FAERS Safety Report 5849405-2 (Version None)
Quarter: 2008Q3

REPORT INFORMATION
  Report Type: 
  Country: None (occurrence: None)
  Receive Date: 20080819
  Receipt Date: 20080811
  Transmission Date: 20090109
  Serious: Yes (Other)
  Sender: FDA-Public Use
  Company Number: NZ-BRISTOL-MYERS SQUIBB COMPANY-14298459

PATIENT
  Age: 67 Year
  Sex: Male

DRUGS (12)
  1. SINEMET [Suspect]
     Indication: PARKINSON'S DISEASE
     Dosage: 1 DF=ONE 50/100MG TABLET  ALSO TAKEN SINEMET (CARBIDOPA+LEVODOPA) TABLET BID,PO
     Route: 048
  2. AMANTADINE HCL [Interacting]
     Route: 065
  3. MABTHERA [Interacting]
     Indication: B-CELL LYMPHOMA
     Route: 042
     Dates: start: 20080728, end: 20080728
  4. TOLCAPONE [Interacting]
     Route: 065
  5. BROMOCRIPTINE MESYLATE [Interacting]
     Dosage: ALSO AS 2.5MG/TID.
     Route: 065
  6. DOCUSATE SODIUM + SENNA [Concomitant]
  7. FLIXOTIDE [Concomitant]
  8. ATROVENT [Concomitant]
  9. LORAZEPAM [Concomitant]
  10. OMEPRAZOLE [Concomitant]
  11. VENLAFAXINE HCL [Concomitant]
  12. ZOPICLONE [Concomitant]

REACTIONS (6)
  - B-CELL LYMPHOMA [None]
  - CHILLS [None]
  - DISEASE PROGRESSION [None]
  - DRUG INTERACTION [None]
  - HYPERTENSION [None]
  - MALAISE [None]
